FAERS Safety Report 9711897 (Version 1)
Quarter: 2013Q4

REPORT INFORMATION
  Report Type: Spontaneous
  Country: US (occurrence: US)
  Receive Date: 20131126
  Receipt Date: 20131126
  Transmission Date: 20140711
  Serious: No
  Sender: FDA-Public Use
  Company Number: US-BRISTOL-MYERS SQUIBB COMPANY-18828129

PATIENT
  Age: 72 Year
  Sex: Female
  Weight: 68.03 kg

DRUGS (3)
  1. BYDUREON [Suspect]
     Indication: TYPE 2 DIABETES MELLITUS
     Dates: start: 201212
  2. METFORMIN HCL TABS [Suspect]
  3. GLIPIZIDE [Suspect]
     Dosage: REDUCED TO ONCE A DAY

REACTIONS (6)
  - Blood glucose decreased [Not Recovered/Not Resolved]
  - Injection site haemorrhage [Unknown]
  - Blood glucose increased [Not Recovered/Not Resolved]
  - Injection site nodule [Unknown]
  - Dysgeusia [Recovered/Resolved]
  - Weight decreased [Unknown]
